FAERS Safety Report 11909797 (Version 1)
Quarter: 2016Q1

REPORT INFORMATION
  Report Type: Spontaneous
  Country: US (occurrence: None)
  Receive Date: 20160111
  Receipt Date: 20160111
  Transmission Date: 20160526
  Serious: Yes (Other)
  Sender: FDA-Public Use
  Company Number: None

PATIENT
  Age: 56 Year
  Sex: Female

DRUGS (1)
  1. CREST 3D WHITE WHITESTRIPS DENTAL WHITENING KIT UNKNOWN VERSION HYDROGEN PEROXIDE 5.3-14% THE PROCTER + GAMBLE COMPANY [Suspect]
     Active Substance: HYDROGEN PEROXIDE
     Dosage: 2 STRIP ?1 ONLY?INTRAORAL
     Dates: start: 20151216, end: 20151216

REACTIONS (12)
  - Anaphylactic shock [None]
  - Loss of consciousness [None]
  - Urticaria [None]
  - Pharyngeal oedema [None]
  - Swelling face [None]
  - Concussion [None]
  - Head injury [None]
  - Skin mass [None]
  - Vomiting [None]
  - Oral pruritus [None]
  - Dyspnoea [None]
  - Fatigue [None]

NARRATIVE: CASE EVENT DATE: 20151216
